FAERS Safety Report 23832642 (Version 1)
Quarter: 2024Q2

REPORT INFORMATION
  Report Type: Spontaneous
  Country: US (occurrence: None)
  Receive Date: 20240508
  Receipt Date: 20240508
  Transmission Date: 20240716
  Serious: No
  Sender: FDA-Public Use
  Company Number: None

PATIENT
  Age: 65 Year
  Sex: Female
  Weight: 58.5 kg

DRUGS (6)
  1. MIEBO [Suspect]
     Active Substance: PERFLUOROHEXYLOCTANE
     Indication: Dry eye
     Dosage: OTHER QUANTITY : 1 DROP(S);?FREQUENCY : 4 TIMES A DAY;?
     Route: 047
     Dates: start: 20240507, end: 20240508
  2. TAMOXIFEN [Concomitant]
     Active Substance: TAMOXIFEN
  3. GRALISE [Concomitant]
     Active Substance: GABAPENTIN
  4. CELEBREX [Concomitant]
     Active Substance: CELECOXIB
  5. VITAMIN D [Concomitant]
     Active Substance: VITAMIN D NOS
  6. VITAMINS [Concomitant]
     Active Substance: VITAMINS

REACTIONS (4)
  - Hypersensitivity [None]
  - Throat irritation [None]
  - Throat tightness [None]
  - Ear pruritus [None]

NARRATIVE: CASE EVENT DATE: 20240508
